FAERS Safety Report 23605189 (Version 1)
Quarter: 2024Q1

REPORT INFORMATION
  Report Type: Spontaneous
  Country: PK (occurrence: PK)
  Receive Date: 20240307
  Receipt Date: 20240307
  Transmission Date: 20240409
  Serious: Yes (Life-Threatening, Hospitalization, Other)
  Sender: FDA-Public Use
  Company Number: PK-PFIZER INC-PV202400030569

PATIENT
  Age: 23 Year
  Sex: Male

DRUGS (11)
  1. METHYLPREDNISOLONE SODIUM SUCCINATE [Suspect]
     Active Substance: METHYLPREDNISOLONE SODIUM SUCCINATE
     Indication: Transplant rejection
     Dosage: 500 MG, 4 DOSES, INJECTION
  2. MYCOPHENOLATE MOFETIL [Concomitant]
     Active Substance: MYCOPHENOLATE MOFETIL
     Indication: Immunosuppressant drug therapy
     Dosage: 500 MG, 2X/DAY
  3. TACROLIMUS [Concomitant]
     Active Substance: TACROLIMUS
     Indication: Immunosuppressant drug therapy
     Dosage: 0.5 MG, 2X/DAY
  4. TACROLIMUS [Concomitant]
     Active Substance: TACROLIMUS
     Dosage: 1.5 MG, 2X/DAY
  5. TACROLIMUS [Concomitant]
     Active Substance: TACROLIMUS
     Dosage: 2 MG, 2X/DAY
  6. TACROLIMUS [Concomitant]
     Active Substance: TACROLIMUS
     Dosage: 2.5 MG, 2X/DAY
  7. TACROLIMUS [Concomitant]
     Active Substance: TACROLIMUS
     Dosage: 3 MG, 2X/DAY
  8. FLUCONAZOLE [Concomitant]
     Active Substance: FLUCONAZOLE
     Indication: Prophylaxis
     Dosage: 100 MG, DAILY
  9. VALGANCICLOVIR [Concomitant]
     Active Substance: VALGANCICLOVIR
     Indication: Prophylaxis
     Dosage: 900 MG, DAILY
     Route: 048
  10. SULFAMETHOXAZOLE\TRIMETHOPRIM [Concomitant]
     Active Substance: SULFAMETHOXAZOLE\TRIMETHOPRIM
     Indication: Prophylaxis
     Dosage: UNK
  11. TAZOBACTAM [Concomitant]
     Active Substance: TAZOBACTAM
     Indication: Antibiotic therapy
     Dosage: 4.5 G, 6 HOURLY INJECTION

REACTIONS (1)
  - Drug ineffective [Unknown]
